FAERS Safety Report 6999663-6 (Version None)
Quarter: 2010Q3

REPORT INFORMATION
  Report Type: 
  Country: None (occurrence: None)
  Receive Date: 20100920
  Receipt Date: 20100329
  Transmission Date: 20110219
  Serious: No
  Sender: FDA-Public Use
  Company Number: US-ASTRAZENECA-2010SE13722

PATIENT
  Age: 55 Year
  Sex: Female
  Weight: 127.5 kg

DRUGS (9)
  1. SEROQUEL [Suspect]
     Indication: BIPOLAR DISORDER
     Dosage: TWICE A DAY
     Route: 048
     Dates: start: 20000101
  2. SEROQUEL [Suspect]
     Indication: PANIC ATTACK
     Dosage: TWICE A DAY
     Route: 048
     Dates: start: 20000101
  3. SEROQUEL [Suspect]
     Indication: AGORAPHOBIA
     Dosage: TWICE A DAY
     Route: 048
     Dates: start: 20000101
  4. XANAX [Concomitant]
  5. PAXIL [Concomitant]
  6. THYROID MED [Concomitant]
  7. BLOOD PRESSURE MED [Concomitant]
  8. PAIN MED [Concomitant]
  9. CHOLESTEROL MED [Concomitant]

REACTIONS (5)
  - CONSTIPATION [None]
  - EYE MOVEMENT DISORDER [None]
  - MENTAL DISORDER [None]
  - TREMOR [None]
  - TYPE 2 DIABETES MELLITUS [None]
